FAERS Safety Report 9871198 (Version 3)
Quarter: 2014Q3

REPORT INFORMATION
  Report Type: Report from Study
  Country: US (occurrence: US)
  Receive Date: 20140205
  Receipt Date: 20140728
  Transmission Date: 20150326
  Serious: Yes (Hospitalization, Other)
  Sender: FDA-Public Use
  Company Number: PHEH2014US002406

PATIENT
  Age: 60 Year
  Sex: Female

DRUGS (1)
  1. GILENYA [Suspect]
     Active Substance: FINGOLIMOD HYDROCHLORIDE
     Indication: MULTIPLE SCLEROSIS
     Dosage: 0.5 MG, QD
     Route: 048
     Dates: start: 20131122

REACTIONS (9)
  - Infection [Recovering/Resolving]
  - Balance disorder [Recovering/Resolving]
  - Gait disturbance [Recovering/Resolving]
  - Musculoskeletal pain [Unknown]
  - Fall [Unknown]
  - Asthenia [Unknown]
  - Concomitant disease aggravated [Unknown]
  - Rotator cuff syndrome [Unknown]
  - Limb injury [Unknown]

NARRATIVE: CASE EVENT DATE: 20140129
